FAERS Safety Report 9579937 (Version 1)
Quarter: 2013Q3

REPORT INFORMATION
  Report Type: Spontaneous
  Country: US (occurrence: None)
  Receive Date: 20130930
  Receipt Date: 20130930
  Transmission Date: 20140515
  Serious: No
  Sender: FDA-Public Use
  Company Number: None

PATIENT
  Age: 62 Year
  Sex: Male
  Weight: 92.99 kg

DRUGS (1)
  1. PANTOPRAZOLE SODIUM [Suspect]
     Indication: GASTROOESOPHAGEAL REFLUX DISEASE
     Dosage: 1 PILL
     Route: 048
     Dates: start: 20130917, end: 20130918

REACTIONS (8)
  - Pruritus [None]
  - Urticaria [None]
  - Wheezing [None]
  - Nausea [None]
  - Feeling abnormal [None]
  - Erythema [None]
  - Gastrooesophageal reflux disease [None]
  - Condition aggravated [None]
